FAERS Safety Report 6336021-1 (Version None)
Quarter: 2009Q3

REPORT INFORMATION
  Report Type: 
  Country: None (occurrence: None)
  Receive Date: 20090901
  Receipt Date: 20090831
  Transmission Date: 20100115
  Serious: Yes (Hospitalization)
  Sender: FDA-Public Use
  Company Number: US-B.I. PHARMACEUTICALS,INC./RIDGEFIELD-2009-BP-09903BP

PATIENT
  Age: 75 Year
  Sex: Female

DRUGS (4)
  1. SPIRIVA [Suspect]
     Indication: EMPHYSEMA
     Dosage: 18 MCG
     Route: 055
     Dates: start: 20070101
  2. LISINOPRIL [Concomitant]
  3. ANTIDEPRESSANT [Concomitant]
  4. 5 EYE DROP MEDS [Concomitant]
     Indication: GLAUCOMA

REACTIONS (4)
  - AORTIC ANEURYSM [None]
  - CATARACT [None]
  - DRUG INEFFECTIVE [None]
  - SMALL INTESTINAL OBSTRUCTION [None]
